FAERS Safety Report 26087454 (Version 1)
Quarter: 2025Q4

REPORT INFORMATION
  Report Type: Spontaneous
  Country: JP (occurrence: JP)
  Receive Date: 20251125
  Receipt Date: 20251125
  Transmission Date: 20260118
  Serious: Yes (Life-Threatening)
  Sender: PFIZER
  Company Number: JP-PFIZER INC-PV202500136204

PATIENT
  Age: 60 Year
  Sex: Male

DRUGS (2)
  1. METHYLPREDNISOLONE SODIUM SUCCINATE [Suspect]
     Active Substance: METHYLPREDNISOLONE SODIUM SUCCINATE
     Indication: Thrombotic microangiopathy
     Dosage: 1000 MG, DAILY FOR 3 DAYS
     Route: 042
  2. PREDNISOLONE [Suspect]
     Active Substance: PREDNISOLONE
     Indication: Thrombotic microangiopathy
     Dosage: 50 MG, DAILY
     Route: 048

REACTIONS (2)
  - Drug ineffective for unapproved indication [Unknown]
  - Off label use [Unknown]
